FAERS Safety Report 7624893-X (Version None)
Quarter: 2011Q3

REPORT INFORMATION
  Report Type: 
  Country: None (occurrence: None)
  Receive Date: 20110720
  Receipt Date: 20110719
  Transmission Date: 20111222
  Serious: Yes (Hospitalization)
  Sender: FDA-Public Use
  Company Number: CA-MERCK-1107USA02388

PATIENT
  Age: 69 Year
  Sex: Female
  Weight: 86 kg

DRUGS (2)
  1. CRESTOR [Suspect]
     Route: 048
  2. JANUVIA [Suspect]
     Route: 048

REACTIONS (2)
  - PRURITUS [None]
  - URTICARIA [None]
